FAERS Safety Report 10726762 (Version 2)
Quarter: 2015Q1

REPORT INFORMATION
  Report Type: Spontaneous
  Country: US (occurrence: US)
  Receive Date: 20150121
  Receipt Date: 20150202
  Transmission Date: 20150721
  Serious: Yes (Death, Hospitalization)
  Sender: FDA-Public Use
  Company Number: US-JNJFOC-20150109991

PATIENT
  Sex: Male

DRUGS (1)
  1. XARELTO [Suspect]
     Active Substance: RIVAROXABAN
     Indication: PRODUCT USED FOR UNKNOWN INDICATION
     Route: 048
     Dates: end: 20150109

REACTIONS (3)
  - Head injury [Unknown]
  - Haemorrhage [Fatal]
  - Loss of consciousness [Unknown]

NARRATIVE: CASE EVENT DATE: 20150109
